FAERS Safety Report 9742082 (Version 1)
Quarter: 2013Q4

REPORT INFORMATION
  Report Type: Spontaneous
  Country: US (occurrence: US)
  Receive Date: 20131210
  Receipt Date: 20131210
  Transmission Date: 20140711
  Serious: No
  Sender: FDA-Public Use
  Company Number: 2013SP000105

PATIENT
  Age: 51 Year
  Sex: Male

DRUGS (4)
  1. FLUOROURACIL [Suspect]
     Indication: COLORECTAL CANCER METASTATIC
     Route: 041
  2. IRINOTECAN [Suspect]
     Indication: COLORECTAL CANCER METASTATIC
     Route: 041
  3. FOLINIC ACID [Suspect]
     Indication: COLORECTAL CANCER METASTATIC
  4. AFLIBERCEPT [Suspect]
     Indication: COLORECTAL CANCER METASTATIC

REACTIONS (2)
  - Disease progression [Unknown]
  - Colorectal cancer metastatic [Unknown]
